FAERS Safety Report 24162123 (Version 1)
Quarter: 2024Q3

REPORT INFORMATION
  Report Type: Spontaneous
  Country: US (occurrence: None)
  Receive Date: 20240731
  Receipt Date: 20240731
  Transmission Date: 20241017
  Serious: Yes (Other)
  Sender: Public
  Company Number: None

PATIENT
  Age: 69 Year
  Sex: Male

DRUGS (1)
  1. CAPECITABINE [Suspect]
     Active Substance: CAPECITABINE

REACTIONS (3)
  - Drug intolerance [None]
  - Pancytopenia [None]
  - Hypertransaminasaemia [None]

NARRATIVE: CASE EVENT DATE: 20240731
